FAERS Safety Report 22096054 (Version 1)
Quarter: 2023Q1

REPORT INFORMATION
  Report Type: Spontaneous
  Country: US (occurrence: US)
  Receive Date: 20230315
  Receipt Date: 20230315
  Transmission Date: 20230417
  Serious: No
  Sender: FDA-Public Use
  Company Number: US-AMGEN-USASP2023043820

PATIENT
  Sex: Female

DRUGS (4)
  1. XGEVA [Suspect]
     Active Substance: DENOSUMAB
     Indication: Product used for unknown indication
     Dosage: UNK UNK, QMO
     Route: 065
     Dates: start: 2020
  2. XGEVA [Suspect]
     Active Substance: DENOSUMAB
     Dosage: UNK UNK, Q2MO
     Route: 065
     Dates: start: 2021
  3. XGEVA [Suspect]
     Active Substance: DENOSUMAB
     Dosage: EVERY 4-6 MONTHS
     Route: 065
     Dates: start: 2022
  4. CALCIUM [Concomitant]
     Active Substance: CALCIUM
     Dosage: UNK
     Route: 065

REACTIONS (1)
  - Off label use [Unknown]
